FAERS Safety Report 10042314 (Version 1)
Quarter: 2014Q1

REPORT INFORMATION
  Report Type: Spontaneous
  Country: US (occurrence: US)
  Receive Date: 20140327
  Receipt Date: 20140327
  Transmission Date: 20141002
  Serious: No
  Sender: FDA-Public Use
  Company Number: US-TEVA-471682USA

PATIENT
  Age: 35 Year
  Sex: Female
  Weight: 52.21 kg

DRUGS (3)
  1. PARAGARD 380A [Suspect]
     Indication: CONTRACEPTION
     Route: 015
     Dates: start: 20140217
  2. AMITRIPTYLINE [Concomitant]
     Indication: INSOMNIA
  3. LEXAPRO [Concomitant]
     Indication: DEPRESSION

REACTIONS (1)
  - Device expulsion [Not Recovered/Not Resolved]
